FAERS Safety Report 7744238-4 (Version None)
Quarter: 2011Q3

REPORT INFORMATION
  Report Type: 
  Country: None (occurrence: None)
  Receive Date: 20110819
  Receipt Date: 20110627
  Transmission Date: 20111222
  Serious: No
  Sender: FDA-Public Use
  Company Number: 036149

PATIENT
  Sex: Male
  Weight: 65.8 kg

DRUGS (8)
  1. KEPPRA [Suspect]
     Indication: CONVULSION
     Dosage: (1075 MG QD ORAL), (2000 MG QD ORAL)
     Route: 048
     Dates: start: 20060101
  2. KEPPRA [Suspect]
     Indication: CONVULSION
     Dosage: (1075 MG QD ORAL), (2000 MG QD ORAL)
     Route: 048
     Dates: start: 20060101
  3. ALLOPURINOL [Concomitant]
  4. LACOSAMIDE [Suspect]
     Indication: CONVULSION
     Dosage: (150 MG QD ORAL), (200 MG QD ORAL)
     Route: 048
     Dates: start: 20101201
  5. LACOSAMIDE [Suspect]
     Indication: CONVULSION
     Dosage: (150 MG QD ORAL), (200 MG QD ORAL)
     Route: 048
     Dates: start: 20101201
  6. MEBARAL [Concomitant]
  7. SYNTHROID [Concomitant]
  8. TOPAMAX [Suspect]
     Indication: CONVULSION
     Dosage: (50 MG BID ORAL)
     Route: 048
     Dates: start: 20060101, end: 20110627

REACTIONS (5)
  - NAUSEA [None]
  - COUGH [None]
  - VOMITING [None]
  - DRUG INTERACTION [None]
  - WEIGHT DECREASED [None]
